FAERS Safety Report 9454280 (Version 1)
Quarter: 2013Q3

REPORT INFORMATION
  Report Type: Spontaneous
  Country: US (occurrence: None)
  Receive Date: 20130809
  Receipt Date: 20130809
  Transmission Date: 20140515
  Serious: No
  Sender: FDA-Public Use
  Company Number: None

PATIENT
  Age: 27 Year
  Sex: Female
  Weight: 95.26 kg

DRUGS (1)
  1. PRO-HEALTH CLINICAL MOUTHWASH CREST/PROCTER + GAMBLE [Suspect]
     Dates: start: 20130806, end: 20130806

REACTIONS (1)
  - Ageusia [None]
